FAERS Safety Report 18090344 (Version 2)
Quarter: 2020Q3

REPORT INFORMATION
  Report Type: Report from Study
  Country: EG (occurrence: EG)
  Receive Date: 20200730
  Receipt Date: 20200902
  Transmission Date: 20201103
  Serious: Yes (Other)
  Sender: FDA-Public Use
  Company Number: EG-REGENERON PHARMACEUTICALS, INC.-2020-52924

PATIENT

DRUGS (2)
  1. EYLEA [Suspect]
     Active Substance: AFLIBERCEPT
     Indication: DIABETIC RETINAL OEDEMA
     Dosage: UNKNOWN DOSE, FREQUENCY AND TOTAL NUMBER OF INJECTIONS IN BOTH EYES
     Route: 031
     Dates: start: 2018
  2. EYLEA [Suspect]
     Active Substance: AFLIBERCEPT
     Dosage: UNKNOWN DOSE, LAST INJECTION IN BOTH EYES
     Route: 031
     Dates: start: 20200618, end: 20200618

REACTIONS (3)
  - Drug ineffective [Unknown]
  - Cataract operation [Unknown]
  - Vitrectomy [Unknown]

NARRATIVE: CASE EVENT DATE: 20200627
